FAERS Safety Report 9398070 (Version 2)
Quarter: 2013Q3

REPORT INFORMATION
  Report Type: Spontaneous
  Country: IT (occurrence: IT)
  Receive Date: 20130712
  Receipt Date: 20130906
  Transmission Date: 20140515
  Serious: Yes (Life-Threatening)
  Sender: FDA-Public Use
  Company Number: PHHY2013IT073478

PATIENT
  Age: 64 Year
  Sex: Female
  Weight: 60 kg

DRUGS (10)
  1. MIRTAZAPINE [Suspect]
     Dosage: 600 MG, ONCE/SINGLE
     Route: 048
     Dates: start: 20130613, end: 20130613
  2. ENALAPRIL [Suspect]
     Dosage: 70 MG, ONCE/SINGLE
     Route: 048
     Dates: start: 20130613, end: 20130613
  3. ELONTRIL [Suspect]
     Dosage: 30 U, ONCE/SINGLE
     Route: 048
     Dates: start: 20130613, end: 20130613
  4. NOZINAN [Suspect]
     Dosage: 10 U, ONCE/SINGLE
     Route: 048
     Dates: start: 20130613, end: 20130613
  5. ANSIOLIN [Suspect]
     Dosage: 20 U, ONCE/SINGLE
     Route: 048
     Dates: start: 20130613, end: 20130613
  6. EFEXOR [Suspect]
     Dosage: 14 U, ONCE/SINGLE
     Route: 048
     Dates: start: 20130613, end: 20130613
  7. EFEXOR [Suspect]
     Dosage: 47 U, ONCE/SINGLE
     Route: 048
     Dates: start: 20130613, end: 20130613
  8. SEROQUEL [Suspect]
     Dosage: 60 U, ONCE/SINGLE
     Route: 048
     Dates: start: 20130613, end: 20130613
  9. TOPAMAX [Suspect]
     Dosage: 60 U, ONCE/SINGLE
     Route: 048
     Dates: start: 20130613, end: 20130613
  10. VENLAFAXIN [Concomitant]

REACTIONS (3)
  - Coma [Recovered/Resolved]
  - Hepatic enzyme increased [Recovered/Resolved]
  - Drug abuse [Recovered/Resolved]
